FAERS Safety Report 4693996-4 (Version None)
Quarter: 2005Q2

REPORT INFORMATION
  Report Type: 
  Country: None (occurrence: None)
  Receive Date: 20050616
  Receipt Date: 20050608
  Transmission Date: 20051028
  Serious: Yes (Death)
  Sender: FDA-Public Use
  Company Number: 163-20785-05020478

PATIENT
  Age: 62 Year
  Sex: Male
  Weight: 73.6 kg

DRUGS (3)
  1. THALOMID [Suspect]
     Indication: MULTIPLE MYELOMA
     Dosage: 100 MG, QHS, ORAL
     Route: 048
     Dates: start: 20040921, end: 20050128
  2. DEXAMETHASONE [Suspect]
     Indication: MULTIPLE MYELOMA
     Dosage: SEE IMAGE, ORAL
     Route: 048
     Dates: start: 20040921, end: 20050129
  3. CLARITHROMYCIN [Suspect]
     Indication: MULTIPLE MYELOMA
     Dosage: 250 MG, BID, ORAL
     Route: 048
     Dates: start: 20040921, end: 20050129

REACTIONS (3)
  - BRONCHOPNEUMONIA [None]
  - EMPHYSEMA [None]
  - WEIGHT INCREASED [None]
